FAERS Safety Report 6069767-3 (Version None)
Quarter: 2009Q1

REPORT INFORMATION
  Report Type: 
  Country: None (occurrence: None)
  Receive Date: 20090204
  Receipt Date: 20090204
  Transmission Date: 20090719
  Serious: Yes (Hospitalization)
  Sender: FDA-Public Use
  Company Number: None

PATIENT
  Age: 37 Year
  Sex: Female
  Weight: 61.2356 kg

DRUGS (3)
  1. CIPROFLOXACIN HCL [Suspect]
     Indication: URINARY TRACT INFECTION
     Dosage: ? BID PO
     Route: 048
     Dates: start: 20061206, end: 20061208
  2. LORAZEPAM [Concomitant]
  3. EFFEXOR [Concomitant]

REACTIONS (9)
  - AGITATION [None]
  - ANXIETY [None]
  - DEPRESSION [None]
  - HYPOPHAGIA [None]
  - INSOMNIA [None]
  - MENTAL DISORDER [None]
  - PANIC REACTION [None]
  - POST-TRAUMATIC STRESS DISORDER [None]
  - THINKING ABNORMAL [None]
